FAERS Safety Report 7324752-6 (Version None)
Quarter: 2011Q1

REPORT INFORMATION
  Report Type: 
  Country: None (occurrence: None)
  Receive Date: 20110301
  Receipt Date: 20110216
  Transmission Date: 20110831
  Serious: Yes (Hospitalization)
  Sender: FDA-Public Use
  Company Number: FR-ELI_LILLY_AND_COMPANY-FR201102004307

PATIENT
  Sex: Female

DRUGS (11)
  1. PREVISCAN [Concomitant]
     Dosage: 15 MG, DAILY (1/D)
     Route: 048
     Dates: start: 20101221, end: 20110119
  2. ROSUVASTATINE [Concomitant]
     Dosage: 10 MG, DAILY (1/D)
  3. AMIODARONE [Concomitant]
     Dosage: 200 MG, DAILY (1/D)
  4. CALCIPARINE [Concomitant]
     Dates: end: 20110102
  5. EFFIENT [Suspect]
     Indication: STENT PLACEMENT
     Dosage: 10 MG, DAILY (1/D)
     Route: 048
     Dates: start: 20101214, end: 20110121
  6. CLOPIDOGREL [Concomitant]
  7. KARDEGIC [Concomitant]
     Dosage: 75 MG, DAILY (1/D)
     Route: 048
  8. TRAMADOL [Concomitant]
  9. PARACETAMOL [Concomitant]
  10. CARVEDILOL [Concomitant]
     Dosage: 6.25 MG, 2/D
  11. PANTOPRAZOLE [Concomitant]
     Dosage: 20 MG, DAILY (1/D)

REACTIONS (8)
  - ARRHYTHMIA SUPRAVENTRICULAR [None]
  - HYPOTENSION [None]
  - RECTAL HAEMORRHAGE [None]
  - SYNCOPE [None]
  - DIVERTICULUM [None]
  - HAEMORRHOIDAL HAEMORRHAGE [None]
  - ANAEMIA [None]
  - ABDOMINAL PAIN [None]
